FAERS Safety Report 6428198-4 (Version None)
Quarter: 2009Q4

REPORT INFORMATION
  Report Type: 
  Country: None (occurrence: None)
  Receive Date: 20091105
  Receipt Date: 20091023
  Transmission Date: 20100525
  Serious: Yes (Life-Threatening)
  Sender: FDA-Public Use
  Company Number: JP-SANOFI-SYNTHELABO-A01200909484

PATIENT
  Sex: Female
  Weight: 51 kg

DRUGS (13)
  1. MS CONTIN [Concomitant]
     Dosage: UNK
     Route: 065
  2. MUCOSTA [Concomitant]
     Dosage: UNK
     Route: 065
  3. LORCAM [Concomitant]
     Dosage: UNK
     Route: 065
  4. ISOVORIN [Suspect]
     Indication: COLON CANCER RECURRENT
     Dosage: 275 MG
     Route: 041
     Dates: start: 20090729, end: 20090729
  5. FLUOROURACIL [Concomitant]
     Indication: COLON CANCER
     Dosage: 500MG/BODY IN BOLUS THEN 700MG/BODY AS CONTINUOUS INFUSION
     Route: 042
     Dates: start: 20090625, end: 20090626
  6. ELPLAT [Suspect]
     Indication: COLON CANCER
     Dosage: 120 MG
     Route: 041
     Dates: start: 20090624, end: 20090729
  7. ELPLAT [Suspect]
     Dosage: 120 MG
     Route: 041
     Dates: start: 20090826, end: 20090826
  8. CAMPTOSAR [Concomitant]
     Dosage: UNK
     Route: 065
     Dates: start: 20070919, end: 20090529
  9. TERPERAN [Concomitant]
     Indication: PREMEDICATION
     Dosage: 20 MG
     Route: 042
     Dates: start: 20090826, end: 20090826
  10. ZANTAC [Concomitant]
     Indication: PREMEDICATION
     Dosage: 50 MG
     Route: 042
     Dates: start: 20090826, end: 20090826
  11. DECADRON [Concomitant]
     Indication: PREMEDICATION
     Dosage: 8 MG
     Route: 042
     Dates: start: 20090826, end: 20090826
  12. KYTRIL [Concomitant]
     Indication: PREMEDICATION
     Dosage: 3 MG
     Route: 042
     Dates: start: 20090826, end: 20090826
  13. AVASTIN [Suspect]
     Indication: COLON CANCER RECURRENT
     Dosage: 5 MG/KG
     Route: 041
     Dates: start: 20090729, end: 20090729

REACTIONS (4)
  - BLOOD PRESSURE DECREASED [None]
  - CARDIAC ARREST [None]
  - HYPOXIA [None]
  - SHOCK [None]
